FAERS Safety Report 9219085 (Version 1)
Quarter: 2013Q2

REPORT INFORMATION
  Report Type: Spontaneous
  Country: US (occurrence: None)
  Receive Date: 20130405
  Receipt Date: 20130405
  Transmission Date: 20140414
  Serious: Yes (Hospitalization)
  Sender: FDA-Public Use
  Company Number: None

PATIENT
  Age: 61 Year
  Sex: Female

DRUGS (2)
  1. PEGASYS [Suspect]
     Indication: CHRONIC HEPATITIS C
     Dosage: PEGASYS 180 MCG ONCE A WEEK, SUBCUTANEOUSLY
     Route: 058
     Dates: start: 20130301, end: 20130328
  2. RIBAVARIN [Suspect]
     Indication: CHRONIC HEPATITIS C
     Dosage: RIBAVIRIN 600MG QAM AND 400MG Q BY MOUTH
     Route: 048
     Dates: start: 20130301, end: 20130328

REACTIONS (1)
  - Haemoglobin decreased [None]
